FAERS Safety Report 11273009 (Version 2)
Quarter: 2015Q3

REPORT INFORMATION
  Report Type: Spontaneous
  Country: US (occurrence: US)
  Receive Date: 20150715
  Receipt Date: 20150803
  Transmission Date: 20151125
  Serious: Yes (Hospitalization, Other)
  Sender: FDA-Public Use
  Company Number: US-PFIZER INC-2015230921

PATIENT
  Age: 16 Year
  Sex: Male

DRUGS (1)
  1. PHENYTOIN. [Suspect]
     Active Substance: PHENYTOIN
     Indication: SEIZURE
     Dosage: 100 MG, 3X/DAY

REACTIONS (4)
  - Hepatosplenomegaly [Not Recovered/Not Resolved]
  - Hilar lymphadenopathy [Recovered/Resolved]
  - Eosinophilia [Unknown]
  - Lung infiltration [Recovered/Resolved]
